FAERS Safety Report 18497546 (Version 1)
Quarter: 2020Q4

REPORT INFORMATION
  Report Type: Spontaneous
  Country: US (occurrence: US)
  Receive Date: 20201112
  Receipt Date: 20201112
  Transmission Date: 20210114
  Serious: Yes (Death, Hospitalization)
  Sender: FDA-Public Use
  Company Number: US-TEVA-2020-US-1847989

PATIENT
  Sex: Female

DRUGS (5)
  1. OXYCONTIN [Suspect]
     Active Substance: OXYCODONE HYDROCHLORIDE
     Route: 065
  2. FENTANYL TRANSDERMAL SYSTEM [Suspect]
     Active Substance: FENTANYL
     Route: 065
  3. HYDROCODONE [Suspect]
     Active Substance: HYDROCODONE
     Route: 065
  4. OXYCODONE [Suspect]
     Active Substance: OXYCODONE
     Route: 065
  5. MORPHINE [Suspect]
     Active Substance: MORPHINE
     Indication: NECK PAIN
     Route: 065

REACTIONS (5)
  - Fall [Unknown]
  - Product prescribing issue [Unknown]
  - Feeling abnormal [Unknown]
  - Death [Fatal]
  - Head injury [Unknown]
